FAERS Safety Report 10298264 (Version 2)
Quarter: 2014Q3

REPORT INFORMATION
  Report Type: Spontaneous
  Country: FR (occurrence: FR)
  Receive Date: 20140711
  Receipt Date: 20140725
  Transmission Date: 20150326
  Serious: Yes (Congenital Anomaly, Other)
  Sender: FDA-Public Use
  Company Number: FR-PFIZER INC-2014190468

PATIENT
  Age: 12 Month
  Sex: Female
  Weight: 3.63 kg

DRUGS (2)
  1. XANAX [Suspect]
     Active Substance: ALPRAZOLAM
     Dosage: 0.25 MG, DAILY
     Route: 064
     Dates: end: 2014
  2. CITALOPRAM [Suspect]
     Active Substance: CITALOPRAM HYDROBROMIDE
     Dosage: 20 MG (0.5 TABLET), DAILY
     Route: 064
     Dates: end: 2014

REACTIONS (6)
  - Cephalo-pelvic disproportion [Unknown]
  - Ventricular septal defect [Unknown]
  - Hypotonia neonatal [Unknown]
  - Macrosomia [Unknown]
  - Maternal exposure during pregnancy [Unknown]
  - Feeding disorder neonatal [Unknown]

NARRATIVE: CASE EVENT DATE: 20140105
